FAERS Safety Report 4371880-3 (Version None)
Quarter: 2004Q2

REPORT INFORMATION
  Report Type: 
  Country: None (occurrence: None)
  Receive Date: 20040602
  Receipt Date: 20040518
  Transmission Date: 20050107
  Serious: Yes (Other)
  Sender: FDA-Public Use
  Company Number: B0333257A

PATIENT
  Age: 34 Year
  Sex: Male

DRUGS (3)
  1. EPIVIR [Suspect]
     Indication: SYSTEMIC ANTIVIRAL TREATMENT
  2. STAVUDINE (FORMULATION UNKNOWN) (STAVUDINE) [Suspect]
     Indication: SYSTEMIC ANTIVIRAL TREATMENT
  3. EFAVIRENZ (FORMULATION UNKNOWN) (EFAVIRENZ) [Suspect]
     Indication: SYSTEMIC ANTIVIRAL TREATMENT

REACTIONS (1)
  - ASEPTIC NECROSIS BONE [None]
